FAERS Safety Report 17899022 (Version 1)
Quarter: 2020Q2

REPORT INFORMATION
  Report Type: Spontaneous
  Country: DE (occurrence: DE)
  Receive Date: 20200615
  Receipt Date: 20200615
  Transmission Date: 20200714
  Serious: Yes (Hospitalization)
  Sender: FDA-Public Use
  Company Number: DE-TEVA-2020-DE-1247693

PATIENT
  Age: 71 Year
  Sex: Male

DRUGS (11)
  1. MCP [Concomitant]
     Active Substance: METOCLOPRAMIDE HYDROCHLORIDE
     Dosage: NK MG, IF NECESSARY
  2. OXYCODON AL 10MG [Concomitant]
     Dosage: 10 MILLIGRAM DAILY; 1-0-0-0
  3. ZYTIGA [Suspect]
     Active Substance: ABIRATERONE ACETATE
     Dosage: 2 DOSAGE FORMS DAILY; NK MG, 0-0-0-2
  4. LAXOBERAL [Concomitant]
     Active Substance: SODIUM PICOSULFATE
     Dosage: 1 DOSAGE FORMS DAILY; NK MG, 0-0-1-0
  5. MIRTAZAPINE. [Suspect]
     Active Substance: MIRTAZAPINE
     Dosage: 15 MILLIGRAM DAILY; 0-0-1-0
  6. PANTOPRAZOL [Concomitant]
     Active Substance: PANTOPRAZOLE SODIUM
     Dosage: 200 MILLIGRAM DAILY; 1-0-0-0
  7. PREDNISOLON [Suspect]
     Active Substance: PREDNISOLONE
     Dosage: 10 MILLIGRAM DAILY;  1-0-1-0
  8. PREGABALIN. [Concomitant]
     Active Substance: PREGABALIN
     Dosage: 2-1-2-0
  9. METAMIZOLE [Suspect]
     Active Substance: METAMIZOLE
     Dosage: 2000 MILLIGRAM DAILY; 1-1-1-1
  10. OXYCODON AL 10MG [Concomitant]
     Dosage: 10 MG, IF NECESSARY
  11. OXYCODON COMP [Concomitant]
     Dosage: 10|20 MG, 1-2-0-1

REACTIONS (3)
  - Diplopia [Unknown]
  - Paresis [Unknown]
  - Anaemia [Unknown]
